FAERS Safety Report 5826199-8 (Version None)
Quarter: 2008Q3

REPORT INFORMATION
  Report Type: 
  Country: None (occurrence: None)
  Receive Date: 20080729
  Receipt Date: 20080721
  Transmission Date: 20090109
  Serious: Yes (Hospitalization)
  Sender: FDA-Public Use
  Company Number: SE-PFIZER INC-2008061077

PATIENT
  Sex: Female

DRUGS (1)
  1. SALAZOPYRIN EN [Suspect]
     Indication: MUSCULOSKELETAL PAIN
     Dosage: DAILY DOSE:500MG
     Route: 048

REACTIONS (8)
  - ABDOMINAL PAIN UPPER [None]
  - HEPATOMEGALY [None]
  - HYPOTENSION [None]
  - OROPHARYNGEAL PAIN [None]
  - PYREXIA [None]
  - SPLENOMEGALY [None]
  - VOMITING [None]
  - WHITE BLOOD CELL COUNT DECREASED [None]
